FAERS Safety Report 14858023 (Version 1)
Quarter: 2018Q2

REPORT INFORMATION
  Report Type: Spontaneous
  Country: FR (occurrence: FR)
  Receive Date: 20180508
  Receipt Date: 20180508
  Transmission Date: 20180711
  Serious: Yes (Other)
  Sender: FDA-Public Use
  Company Number: FR-MERCK KGAA-2047347

PATIENT
  Age: 41 Year
  Sex: Female

DRUGS (1)
  1. NOVOTHYROX [Suspect]
     Active Substance: LEVOTHYROXINE SODIUM
     Indication: PRODUCT USED FOR UNKNOWN INDICATION

REACTIONS (12)
  - Arrhythmia [None]
  - Fatigue [None]
  - Constipation [None]
  - Loss of personal independence in daily activities [None]
  - Sense of oppression [None]
  - Tinnitus [None]
  - Intestinal transit time abnormal [None]
  - Vertigo [None]
  - Insomnia [None]
  - Asthenia [None]
  - Headache [None]
  - Diarrhoea [None]

NARRATIVE: CASE EVENT DATE: 201706
